FAERS Safety Report 8300266-1 (Version None)
Quarter: 2012Q2

REPORT INFORMATION
  Report Type: 
  Country: None (occurrence: None)
  Receive Date: 20120420
  Receipt Date: 20120416
  Transmission Date: 20120825
  Serious: Yes (Other)
  Sender: FDA-Public Use
  Company Number: US-BAYER-2012-037045

PATIENT
  Sex: Female

DRUGS (1)
  1. YASMIN [Suspect]
     Dosage: UNK

REACTIONS (10)
  - INFERTILITY FEMALE [None]
  - SEPSIS [None]
  - HYPERTRICHOSIS [None]
  - MIGRAINE [None]
  - DEPRESSION [None]
  - DISCOMFORT [None]
  - MYOCARDIAL INFARCTION [None]
  - MOOD SWINGS [None]
  - LOSS OF LIBIDO [None]
  - HYPOTHYROIDISM [None]
